FAERS Safety Report 16755796 (Version 1)
Quarter: 2019Q3

REPORT INFORMATION
  Report Type: Spontaneous
  Country: SI (occurrence: SI)
  Receive Date: 20190829
  Receipt Date: 20190829
  Transmission Date: 20191005
  Serious: Yes (Hospitalization)
  Sender: FDA-Public Use
  Company Number: SI-ROCHE-2387165

PATIENT
  Age: 69 Year
  Sex: Female

DRUGS (5)
  1. PLIVIT D3 [Concomitant]
     Active Substance: CHOLECALCIFEROL
     Route: 065
  2. FOSTER [Concomitant]
     Active Substance: BECLOMETHASONE\FORMOTEROL
     Route: 065
  3. LETROZOL [Concomitant]
     Active Substance: LETROZOLE
     Route: 065
  4. PROLIA [Concomitant]
     Active Substance: DENOSUMAB
     Route: 065
  5. PERJETA [Suspect]
     Active Substance: PERTUZUMAB
     Indication: BREAST CANCER
     Route: 042
     Dates: start: 20190409, end: 20190626

REACTIONS (5)
  - Infusion related reaction [Recovered/Resolved]
  - Dyspnoea [Recovered/Resolved]
  - Oxygen saturation decreased [Recovered/Resolved]
  - Hypertension [Recovered/Resolved]
  - Body temperature increased [Recovered/Resolved]

NARRATIVE: CASE EVENT DATE: 20190626
